FAERS Safety Report 5226921-8 (Version None)
Quarter: 2007Q1

REPORT INFORMATION
  Report Type: 
  Country: None (occurrence: None)
  Receive Date: 20070201
  Receipt Date: 20070201
  Transmission Date: 20070707
  Serious: Yes (Death)
  Sender: FDA-Public Use
  Company Number: None

PATIENT
  Age: 76 Year
  Sex: Female
  Weight: 70.7611 kg

DRUGS (2)
  1. ANAGRELIDE HCL [Suspect]
     Indication: ESSENTIAL THROMBOCYTHAEMIA
     Dosage: DAILY PO
     Route: 048
  2. ANAGRELIDE HCL [Suspect]
     Indication: ESSENTIAL THROMBOCYTHAEMIA
     Dosage: DAILY PO
     Route: 048

REACTIONS (10)
  - ABDOMINAL COMPARTMENT SYNDROME [None]
  - ABDOMINAL DISTENSION [None]
  - ARTERIAL RUPTURE [None]
  - CEREBROVASCULAR ACCIDENT [None]
  - DYSPLASIA [None]
  - MYOCARDIAL INFARCTION [None]
  - PERITONEAL HAEMORRHAGE [None]
  - RENAL ARTERY FIBROMUSCULAR DYSPLASIA [None]
  - SHOCK HAEMORRHAGIC [None]
  - VASCULITIS [None]
